FAERS Safety Report 4976886-9 (Version None)
Quarter: 2006Q2

REPORT INFORMATION
  Report Type: 
  Country: None (occurrence: None)
  Receive Date: 20060418
  Receipt Date: 20060418
  Transmission Date: 20061013
  Serious: Yes (Hospitalization)
  Sender: FDA-Public Use
  Company Number: None

PATIENT
  Age: 64 Year
  Sex: Female

DRUGS (1)
  1. LUNESTA [Suspect]
     Indication: SLEEP DISORDER
     Dates: end: 20060313

REACTIONS (11)
  - ANAEMIA [None]
  - CONJUNCTIVITIS [None]
  - DEHYDRATION [None]
  - HYPERKALAEMIA [None]
  - PO2 DECREASED [None]
  - RASH GENERALISED [None]
  - RASH MACULO-PAPULAR [None]
  - RENAL FAILURE ACUTE [None]
  - TENDERNESS [None]
  - TOXIC EPIDERMAL NECROLYSIS [None]
  - URTICARIA [None]
